FAERS Safety Report 9426763 (Version 1)
Quarter: 2013Q3

REPORT INFORMATION
  Report Type: Spontaneous
  Country: US (occurrence: US)
  Receive Date: 20130730
  Receipt Date: 20130730
  Transmission Date: 20140515
  Serious: Yes (Other)
  Sender: FDA-Public Use
  Company Number: US-SANOFI-AVENTIS-2013SA008373

PATIENT
  Sex: Male

DRUGS (1)
  1. AMBIEN [Suspect]

REACTIONS (4)
  - Hallucination [Unknown]
  - Aggression [Unknown]
  - Confusional state [Unknown]
  - Poor quality sleep [Unknown]
